FAERS Safety Report 16571686 (Version 12)
Quarter: 2021Q4

REPORT INFORMATION
  Report Type: Spontaneous
  Country: US (occurrence: US)
  Receive Date: 20190715
  Receipt Date: 20211104
  Transmission Date: 20220303
  Serious: Yes (Hospitalization, Other)
  Sender: FDA-Public Use
  Company Number: US-PFIZER INC-2019213942

PATIENT
  Age: 46 Year
  Sex: Female
  Weight: 68.04 kg

DRUGS (8)
  1. LYRICA [Suspect]
     Active Substance: PREGABALIN
     Indication: Neuropathy peripheral
     Dosage: 150 MG, 3X/DAY
     Route: 048
     Dates: start: 20111028
  2. LYRICA [Suspect]
     Active Substance: PREGABALIN
     Indication: Polyneuropathy
     Dosage: UNK
     Dates: start: 20120917
  3. LYRICA [Suspect]
     Active Substance: PREGABALIN
     Indication: Autonomic neuropathy
     Dosage: 150 MG, 1X/DAY
     Route: 048
     Dates: start: 201906
  4. LYRICA [Suspect]
     Active Substance: PREGABALIN
     Indication: Fibromyalgia
     Dosage: 150 MG, 2X/DAY (TAKING 2 INSTEAD OF 3)
     Route: 048
     Dates: start: 20190702
  5. LYRICA [Suspect]
     Active Substance: PREGABALIN
     Indication: Neuralgia
     Dosage: 150 MG, 3X/DAY
  6. LYRICA [Suspect]
     Active Substance: PREGABALIN
     Indication: Small fibre neuropathy
  7. CLONAZEPAM [Concomitant]
     Active Substance: CLONAZEPAM
     Indication: Sleep disorder
     Dosage: 1 MG, AS NEEDED (1 MG TWICE A DAY AS NEEDED)
     Route: 048
     Dates: start: 2011
  8. CLONAZEPAM [Concomitant]
     Active Substance: CLONAZEPAM
     Indication: Neuralgia

REACTIONS (15)
  - Fall [Unknown]
  - Face injury [Unknown]
  - Upper limb fracture [Unknown]
  - Limb crushing injury [Unknown]
  - Seizure [Unknown]
  - Tooth fracture [Unknown]
  - Drug ineffective [Unknown]
  - Intentional product use issue [Unknown]
  - Feeling abnormal [Unknown]
  - Weight increased [Unknown]
  - Alopecia [Unknown]
  - Limb injury [Unknown]
  - Anxiety [Unknown]
  - Memory impairment [Unknown]
  - Withdrawal syndrome [Unknown]

NARRATIVE: CASE EVENT DATE: 20190601
